FAERS Safety Report 6426393-1 (Version None)
Quarter: 2009Q4

REPORT INFORMATION
  Report Type: 
  Country: None (occurrence: None)
  Receive Date: 20091030
  Receipt Date: 20091016
  Transmission Date: 20100525
  Serious: Yes (Hospitalization)
  Sender: FDA-Public Use
  Company Number: DSJ-2009-13658

PATIENT
  Age: 66 Year
  Sex: Female

DRUGS (3)
  1. BENICAR HCT [Suspect]
     Indication: HYPERTENSION
     Dosage: 20/12.5 MG (1 IN 1 D), PER ORAL
     Route: 048
     Dates: start: 20090319, end: 20090901
  2. BROMAZEPAM (BROMAZEPAM) (BROMAZEPAM) [Concomitant]
  3. VENLAFAXINE (VENLAFAXINE)(VENLAFAXINE) [Concomitant]

REACTIONS (1)
  - DRUG INEFFECTIVE [None]
